FAERS Safety Report 24126773 (Version 1)
Quarter: 2024Q3

REPORT INFORMATION
  Report Type: Spontaneous
  Country: NL (occurrence: NL)
  Receive Date: 20240723
  Receipt Date: 20240723
  Transmission Date: 20241016
  Serious: Yes (Disabling)
  Sender: BAYER
  Company Number: None

PATIENT
  Age: 36 Year
  Sex: Female
  Weight: 62 kg

DRUGS (1)
  1. MIRENA [Suspect]
     Active Substance: LEVONORGESTREL
     Indication: Contraception
     Dosage: 20?G/DAY
     Route: 015
     Dates: start: 20200125, end: 20240612

REACTIONS (6)
  - Restlessness [None]
  - Panic attack [None]
  - Depressed mood [None]
  - Anxiety [None]
  - Palpitations [None]
  - Feeling jittery [None]
